FAERS Safety Report 23778557 (Version 1)
Quarter: 2024Q2

REPORT INFORMATION
  Report Type: Spontaneous
  Country: US (occurrence: US)
  Receive Date: 20240424
  Receipt Date: 20240424
  Transmission Date: 20240716
  Serious: No
  Sender: FDA-Public Use
  Company Number: US-SANDOZ-SDZ2024US042381

PATIENT
  Sex: Male

DRUGS (1)
  1. PREDNISOLONE ACETATE [Suspect]
     Active Substance: PREDNISOLONE ACETATE
     Indication: Eye infection
     Dosage: 1 DROP, Q6H
     Route: 065

REACTIONS (4)
  - Eye swelling [Unknown]
  - Eye infection [Recovered/Resolved]
  - Product prescribing error [Unknown]
  - Product storage error [Unknown]
